FAERS Safety Report 18527368 (Version 2)
Quarter: 2020Q4

REPORT INFORMATION
  Report Type: Spontaneous
  Country: TW (occurrence: TW)
  Receive Date: 20201120
  Receipt Date: 20201130
  Transmission Date: 20210114
  Serious: Yes (Other)
  Sender: FDA-Public Use
  Company Number: TW-PFIZER INC-2020454459

PATIENT
  Age: 39 Year
  Sex: Male

DRUGS (1)
  1. BENEFIX [Suspect]
     Active Substance: COAGULATION FACTOR IX RECOMBINANT HUMAN\ISOPROPYL ALCOHOL
     Indication: HAEMORRHAGE PROPHYLAXIS
     Dosage: 3000 IU, 2X/WEEK (BIW)
     Route: 042

REACTIONS (1)
  - Limb crushing injury [Recovered/Resolved]

NARRATIVE: CASE EVENT DATE: 20201116
